FAERS Safety Report 6317609-0 (Version None)
Quarter: 2009Q3

REPORT INFORMATION
  Report Type: 
  Country: None (occurrence: None)
  Receive Date: 20090821
  Receipt Date: 20090817
  Transmission Date: 20100115
  Serious: Yes (Hospitalization, Other)
  Sender: FDA-Public Use
  Company Number: FR-BRISTOL-MYERS SQUIBB COMPANY-14744759

PATIENT
  Age: 89 Year
  Sex: Female

DRUGS (7)
  1. APROVEL TABS 75 MG [Suspect]
     Indication: ATRIAL FIBRILLATION
     Route: 048
     Dates: start: 20090601
  2. CARDENSIEL [Interacting]
     Indication: ATRIAL FIBRILLATION
     Dosage: 1 TABLET DAILY
  3. NOCTRAN [Interacting]
     Indication: CARDIAC FAILURE
     Dosage: 1 TABLET DAILY
  4. ALDACTONE [Interacting]
     Indication: CARDIAC FAILURE
     Dosage: 1 TABLET DAILY
  5. PREVISCAN [Concomitant]
     Indication: ATRIAL FIBRILLATION
     Dosage: 1 D.F=0.75 UNITS
     Route: 048
     Dates: start: 20090601
  6. MOPRAL [Concomitant]
     Indication: DUODENAL ULCER
     Dosage: 1 CAPSULE DAILY
     Route: 048
  7. ZOCOR [Concomitant]
     Indication: DYSLIPIDAEMIA
     Dosage: 1 TABLET DAILY
     Route: 048

REACTIONS (4)
  - DRUG INTERACTION [None]
  - FALL [None]
  - GENERAL PHYSICAL HEALTH DETERIORATION [None]
  - URINARY TRACT INFECTION [None]
